FAERS Safety Report 8384036-4 (Version None)
Quarter: 2012Q2

REPORT INFORMATION
  Report Type: 
  Country: None (occurrence: None)
  Receive Date: 20120524
  Receipt Date: 20120518
  Transmission Date: 20120825
  Serious: No
  Sender: FDA-Public Use
  Company Number: US-BAYER-2012-050905

PATIENT
  Age: 79 Year
  Sex: Female
  Weight: 63 kg

DRUGS (2)
  1. DUONEB [Concomitant]
  2. NAPROXEN (ALEVE) [Suspect]
     Indication: ARTHRITIS
     Dosage: UNK
     Route: 048
     Dates: start: 20120518

REACTIONS (1)
  - PRURITUS [None]
